FAERS Safety Report 21508277 (Version 1)
Quarter: 2022Q4

REPORT INFORMATION
  Report Type: Spontaneous
  Country: SI (occurrence: SI)
  Receive Date: 20221026
  Receipt Date: 20221026
  Transmission Date: 20230113
  Serious: Yes (Other)
  Sender: FDA-Public Use
  Company Number: SI-002147023-NVSC2022SI194788

PATIENT
  Age: 51 Year
  Sex: Male

DRUGS (1)
  1. FINGOLIMOD [Suspect]
     Active Substance: FINGOLIMOD
     Indication: Product used for unknown indication
     Dosage: UNK
     Route: 065
     Dates: start: 2020

REACTIONS (8)
  - Fall [Unknown]
  - Pain [Unknown]
  - Expanded disability status scale score increased [Unknown]
  - Secondary progressive multiple sclerosis [Unknown]
  - Paraesthesia [Unknown]
  - Quadriparesis [Unknown]
  - Hypoaesthesia [Unknown]
  - Fatigue [Unknown]
